FAERS Safety Report 21270012 (Version 1)
Quarter: 2022Q3

REPORT INFORMATION
  Report Type: Spontaneous
  Country: US (occurrence: US)
  Receive Date: 20220830
  Receipt Date: 20220830
  Transmission Date: 20221027
  Serious: No
  Sender: FDA-Public Use
  Company Number: US-VERTEX PHARMACEUTICALS-2022-008788

PATIENT
  Sex: Female

DRUGS (10)
  1. SYMDEKO [Suspect]
     Active Substance: IVACAFTOR\TEZACAFTOR
     Indication: Cystic fibrosis
     Dosage: 100 MG TEZACAFTOR/150 MG IVACAFTOR AND 150 MG IVACAFTOR, BID
     Route: 048
     Dates: start: 20220131, end: 20220301
  2. BUPROPION [Concomitant]
     Active Substance: BUPROPION
     Dosage: 100 MG TABLET (12 H)
  3. DULOXETINE [Concomitant]
     Active Substance: DULOXETINE
     Dosage: 30 MG CAPSULES
  4. OMEPRAZOLE [Concomitant]
     Active Substance: OMEPRAZOLE
     Dosage: 20 MG CAPSULES
  5. PULMOZYME [Concomitant]
     Active Substance: DORNASE ALFA
     Dosage: 1 MG/ML INH SOL 30 X 2.5ML
  6. ALBUTEROL SULFATE [Concomitant]
     Active Substance: ALBUTEROL SULFATE
     Dosage: INH (200 PUFFS) 18GM
  7. SEROQUEL [Concomitant]
     Active Substance: QUETIAPINE FUMARATE
     Dosage: 300 MG TABLETS
  8. ZYRTEC [Concomitant]
     Active Substance: CETIRIZINE HYDROCHLORIDE
     Dosage: 10 MG TABLETS OTC
  9. LINZESS [Concomitant]
     Active Substance: LINACLOTIDE
     Dosage: 145 MCG CAPSULES
  10. MEGESTROL [Concomitant]
     Active Substance: MEGESTROL
     Dosage: 625 MG/5 ML

REACTIONS (3)
  - Decreased appetite [Unknown]
  - Treatment noncompliance [Unknown]
  - Mental disorder [Not Recovered/Not Resolved]

NARRATIVE: CASE EVENT DATE: 20220101
